FAERS Safety Report 8886472 (Version 2)
Quarter: 2012Q4

REPORT INFORMATION
  Report Type: 
  Country: CH (occurrence: CH)
  Receive Date: 20121105
  Receipt Date: 20121207
  Transmission Date: 20130627
  Serious: Yes (Other)
  Sender: FDA-Public Use
  Company Number: CH-GLAXOSMITHKLINE-B0841580A

PATIENT
  Age: 21 None
  Sex: Female
  Weight: 55 kg

DRUGS (5)
  1. BENLYSTA [Suspect]
     Indication: SYSTEMIC LUPUS ERYTHEMATOSUS
     Dosage: 520MG per day
     Route: 042
     Dates: start: 20121015
  2. XYZAL [Concomitant]
     Indication: SYSTEMIC LUPUS ERYTHEMATOSUS
  3. PANTAZOL [Concomitant]
     Indication: SYSTEMIC LUPUS ERYTHEMATOSUS
  4. SPIRICORT [Concomitant]
     Indication: SYSTEMIC LUPUS ERYTHEMATOSUS
  5. PLAQUENIL [Concomitant]
     Indication: SYSTEMIC LUPUS ERYTHEMATOSUS

REACTIONS (6)
  - Angioedema [Unknown]
  - Pruritus [Recovered/Resolved]
  - Rash [Recovered/Resolved]
  - Arthralgia [Recovered/Resolved]
  - Urticaria [Unknown]
  - Urticaria [Unknown]
